FAERS Safety Report 16146467 (Version 1)
Quarter: 2019Q2

REPORT INFORMATION
  Report Type: Spontaneous
  Country: AU (occurrence: AU)
  Receive Date: 20190402
  Receipt Date: 20190402
  Transmission Date: 20190711
  Serious: Yes (Death)
  Sender: FDA-Public Use
  Company Number: AU-ROCHE-2137110

PATIENT
  Weight: 81 kg

DRUGS (2)
  1. PREDNISOLONE. [Concomitant]
     Active Substance: PREDNISOLONE
     Route: 065
  2. ACTEMRA [Suspect]
     Active Substance: TOCILIZUMAB
     Indication: VASCULITIS
     Dosage: ONGOING
     Route: 042

REACTIONS (3)
  - Off label use [Fatal]
  - Intentional product use issue [Fatal]
  - Death [Fatal]
